FAERS Safety Report 7033050-X (Version None)
Quarter: 2010Q4

REPORT INFORMATION
  Report Type: 
  Country: None (occurrence: None)
  Receive Date: 20101007
  Receipt Date: 20100927
  Transmission Date: 20110411
  Serious: Yes (Other)
  Sender: FDA-Public Use
  Company Number: US-PFIZER INC-2010123012

PATIENT
  Sex: Male
  Weight: 68 kg

DRUGS (5)
  1. XALATAN [Suspect]
     Indication: EYE DISORDER
     Dosage: ONE DROP, 1X/DAY, IN EACH EYE, AT BEDTIME
     Route: 047
     Dates: start: 20090701
  2. LIPITOR [Concomitant]
     Dosage: UNK
  3. DILANTIN [Concomitant]
     Dosage: UNK
  4. BENADRYL [Concomitant]
     Dosage: UNK
  5. PLAVIX [Concomitant]
     Dosage: UNK

REACTIONS (1)
  - VISUAL ACUITY REDUCED [None]
